FAERS Safety Report 13107856 (Version 1)
Quarter: 2017Q1

REPORT INFORMATION
  Report Type: Report from Study
  Country: TR (occurrence: TR)
  Receive Date: 20170112
  Receipt Date: 20170112
  Transmission Date: 20170428
  Serious: Yes (Death, Other)
  Sender: FDA-Public Use
  Company Number: TR-ROCHE-1876759

PATIENT
  Age: 42 Year
  Sex: Male

DRUGS (8)
  1. DIPYRIDAMOLE. [Concomitant]
     Active Substance: DIPYRIDAMOLE
     Route: 065
  2. ALTEPLASE [Suspect]
     Active Substance: ALTEPLASE
     Route: 041
  3. ALTEPLASE [Suspect]
     Active Substance: ALTEPLASE
     Route: 041
  4. HEPARIN [Concomitant]
     Active Substance: HEPARIN SODIUM
     Indication: ARTIFICIAL HEART IMPLANT
     Route: 042
  5. ACETYLSALICYLIC ACID [Concomitant]
     Active Substance: ASPIRIN
     Route: 065
  6. ALTEPLASE [Suspect]
     Active Substance: ALTEPLASE
     Indication: ARTIFICIAL HEART IMPLANT
     Route: 040
  7. WARFARIN [Concomitant]
     Active Substance: WARFARIN
  8. ALTEPLASE [Suspect]
     Active Substance: ALTEPLASE
     Dosage: INFUSING THE LEFT VENTRICLE VIA CATHETER AT 1.5 MG/MIN OVER A PERIOD OF 30 MINUTES.
     Route: 016

REACTIONS (2)
  - Thrombosis [Unknown]
  - Haemorrhage intracranial [Fatal]
